FAERS Safety Report 7418233-9 (Version None)
Quarter: 2011Q2

REPORT INFORMATION
  Report Type: 
  Country: None (occurrence: None)
  Receive Date: 20110407
  Receipt Date: 20110325
  Transmission Date: 20111010
  Serious: Yes (Other)
  Sender: FDA-Public Use
  Company Number: 029996

PATIENT
  Age: 37 Year
  Sex: Female

DRUGS (5)
  1. KEPPRA [Suspect]
     Indication: POISONING
     Dosage: (500 MG FILM-COATED TABLETS FOR ORAL USE ORAL)
     Route: 048
     Dates: start: 20110228, end: 20110228
  2. GARDENALE /00023202/ (GARDENALE) [Suspect]
     Indication: POISONING
     Dates: start: 20110228, end: 20110228
  3. TOPAMAX [Suspect]
     Indication: POISONING
     Dosage: (200 MG FILM-COATED TABLETS-60 TABLETS)
     Dates: start: 20110228, end: 20110228
  4. LUMINALETTE (LUMINALETTE) [Suspect]
     Dosage: (15 MG TABLETS)
     Dates: start: 20110228
  5. ALCOHOL /00031101/ (ALCOHOLIC BEVERAGES) (NOT SPECIFIED) [Suspect]
     Dates: start: 20110228

REACTIONS (3)
  - SELF INJURIOUS BEHAVIOUR [None]
  - ALCOHOL USE [None]
  - POISONING [None]
